FAERS Safety Report 6795386-7 (Version None)
Quarter: 2010Q2

REPORT INFORMATION
  Report Type: 
  Country: None (occurrence: None)
  Receive Date: 20100625
  Receipt Date: 20100615
  Transmission Date: 20101027
  Serious: No
  Sender: FDA-Public Use
  Company Number: US-JNJFOC-20100605565

PATIENT
  Sex: Male
  Weight: 90.72 kg

DRUGS (8)
  1. DURAGESIC-100 [Suspect]
     Indication: BACK PAIN
     Dosage: NDC# 50458-0094-05
     Route: 062
  2. OXYCODONE HCL [Concomitant]
     Indication: BREAKTHROUGH PAIN
     Dosage: 1 EVERY 4-6 HOURS AS NEEDED
     Route: 048
  3. ZOLOFT [Concomitant]
     Indication: DEPRESSION
     Route: 048
  4. PRILOSEC [Concomitant]
     Indication: GASTRIC DISORDER
     Route: 048
  5. LYRICA [Concomitant]
     Indication: NEURALGIA
     Route: 048
  6. EZETIMIBE [Concomitant]
     Indication: BLOOD CHOLESTEROL
  7. LISINOPRIL [Concomitant]
     Indication: BLOOD PRESSURE
     Route: 048
  8. AMLODIPINE [Concomitant]
     Indication: BLOOD PRESSURE
     Route: 048

REACTIONS (2)
  - PRODUCT ADHESION ISSUE [None]
  - WRONG TECHNIQUE IN DRUG USAGE PROCESS [None]
